FAERS Safety Report 7093346-2 (Version None)
Quarter: 2010Q4

REPORT INFORMATION
  Report Type: 
  Country: None (occurrence: None)
  Receive Date: 20101110
  Receipt Date: 20101102
  Transmission Date: 20110411
  Serious: No
  Sender: FDA-Public Use
  Company Number: US-B.I. PHARMACEUTICALS,INC./RIDGEFIELD-2010-BP-11826BP

PATIENT
  Sex: Female

DRUGS (9)
  1. SPIRIVA [Suspect]
     Indication: CHRONIC OBSTRUCTIVE PULMONARY DISEASE
     Dosage: 18 MCG
     Route: 055
     Dates: start: 20100820, end: 20101015
  2. ASPIRIN [Concomitant]
     Indication: PROPHYLAXIS
     Dosage: 81 MG
     Route: 048
  3. CARDIZEM [Concomitant]
     Indication: HYPERTENSION
     Dosage: 180 MG
     Route: 048
  4. CYCLOBENZAPRINE [Concomitant]
     Indication: RESTLESS LEGS SYNDROME
     Dosage: 10 MG
     Route: 048
  5. LORCAINIDE [Concomitant]
     Indication: ARRHYTHMIA
     Dosage: 100 MG
     Route: 048
  6. LIPITOR [Concomitant]
     Indication: BLOOD CHOLESTEROL INCREASED
     Dosage: 40 MG
     Route: 048
  7. PRILOSEC [Concomitant]
     Indication: GASTROOESOPHAGEAL REFLUX DISEASE
     Dosage: 20 MG
     Route: 048
  8. SYNTHROID [Concomitant]
     Indication: HYPOTHYROIDISM
     Dosage: 100MCG ON MONDAYS, 50MCG TUES-SUN
     Route: 048
  9. SYMBICORT [Concomitant]
     Indication: CHRONIC OBSTRUCTIVE PULMONARY DISEASE
     Route: 055

REACTIONS (7)
  - DRY MOUTH [None]
  - DRY THROAT [None]
  - OROPHARYNGEAL PAIN [None]
  - PHARYNGEAL ERYTHEMA [None]
  - THROAT TIGHTNESS [None]
  - TONGUE DISORDER [None]
  - URINE ODOUR ABNORMAL [None]
